FAERS Safety Report 4831154-0 (Version None)
Quarter: 2005Q4

REPORT INFORMATION
  Report Type: 
  Country: None (occurrence: None)
  Receive Date: 20051114
  Receipt Date: 20051019
  Transmission Date: 20060501
  Serious: Yes (Life-Threatening)
  Sender: FDA-Public Use
  Company Number: 2005BH002565

PATIENT
  Age: 26 Year
  Sex: Female

DRUGS (8)
  1. LORAZEPAM [Suspect]
     Dosage: 7 MG
     Dates: start: 20050906, end: 20050917
  2. CISORDINOL-ACUTARD (ZUCLOPENTHIXOL ACETATE) [Suspect]
     Dosage: 200 MG
     Dates: start: 20050908, end: 20050915
  3. ZYPREXA [Concomitant]
  4. DEPAKENE [Concomitant]
  5. HALDOL [Concomitant]
  6. TRUXAL [Concomitant]
  7. PROTHIPENDYL HYDROCHLORIDE [Concomitant]
  8. ... [Concomitant]

REACTIONS (3)
  - FIBRIN D DIMER INCREASED [None]
  - PULMONARY EMBOLISM [None]
  - TACHYCARDIA [None]
